FAERS Safety Report 25716545 (Version 1)
Quarter: 2025Q3

REPORT INFORMATION
  Report Type: Spontaneous
  Country: US (occurrence: US)
  Receive Date: 20250822
  Receipt Date: 20250822
  Transmission Date: 20251021
  Serious: Yes (Death, Hospitalization)
  Sender: AMGEN
  Company Number: US-AMGEN-USASP2025164070

PATIENT

DRUGS (1)
  1. PREDNISONE [Suspect]
     Active Substance: PREDNISONE
     Indication: Immunosuppressant drug therapy
     Dosage: UNK MILLIGRAM, QD
     Route: 065

REACTIONS (8)
  - Death [Fatal]
  - Hypoxia [Unknown]
  - Bacterial infection [Unknown]
  - Fungal infection [Unknown]
  - Mycobacterial infection [Unknown]
  - Viral infection [Unknown]
  - Coronavirus infection [Unknown]
  - Mechanical ventilation [Unknown]
